FAERS Safety Report 18860945 (Version 5)
Quarter: 2021Q3

REPORT INFORMATION
  Report Type: Report from Study
  Country: US (occurrence: US)
  Receive Date: 20210208
  Receipt Date: 20210915
  Transmission Date: 20211014
  Serious: Yes (Other)
  Sender: FDA-Public Use
  Company Number: NVSC2021US021596

PATIENT
  Age: 55 Year
  Sex: Female

DRUGS (2)
  1. CARVEDILOL. [Suspect]
     Active Substance: CARVEDILOL
     Indication: PRODUCT USED FOR UNKNOWN INDICATION
     Dosage: UNK
     Route: 065
  2. ENTRESTO [Suspect]
     Active Substance: SACUBITRIL\VALSARTAN
     Indication: CARDIAC FAILURE
     Dosage: 50 MG, BID (24/26 MG)
     Route: 048
     Dates: start: 2016

REACTIONS (8)
  - Ejection fraction decreased [Unknown]
  - Motion sickness [Recovering/Resolving]
  - Nausea [Recovering/Resolving]
  - Blood potassium increased [Recovered/Resolved]
  - Diarrhoea [Recovering/Resolving]
  - Hypotension [Unknown]
  - Abdominal discomfort [Recovering/Resolving]
  - Anxiety [Unknown]

NARRATIVE: CASE EVENT DATE: 202012
